FAERS Safety Report 5113474-8 (Version None)
Quarter: 2006Q3

REPORT INFORMATION
  Report Type: 
  Country: None (occurrence: None)
  Receive Date: 20060920
  Receipt Date: 20000926
  Transmission Date: 20061208
  Serious: Yes (Disabling)
  Sender: FDA-Public Use
  Company Number: STI-2006-00188

PATIENT
  Age: 14 Year
  Sex: Male

DRUGS (3)
  1. 019A STIEMYCIN (ERYTHROMYCIN TOPICAL) (ERYTHROMYCIN) (SOLUTION) [Suspect]
     Indication: ACNE
     Dosage: (1 IN 1 DAYS) TOPICAL
     Route: 061
  2. TETRALYSAL (LYMECYCLINE) [Suspect]
     Dosage: (1 IN 1 DAYS) ORAL
     Route: 048
  3. GLYCEROL (GLYCEROL) (SOAP) [Concomitant]

REACTIONS (1)
  - BLINDNESS [None]
